FAERS Safety Report 9857187 (Version 1)
Quarter: 2014Q1

REPORT INFORMATION
  Report Type: Spontaneous
  Country: PL (occurrence: PL)
  Receive Date: 20140130
  Receipt Date: 20140130
  Transmission Date: 20141002
  Serious: Yes (Other)
  Sender: FDA-Public Use
  Company Number: CHNY2014PL000604

PATIENT
  Sex: Female

DRUGS (5)
  1. DICLOFENAC [Suspect]
     Dosage: 100 MG, QD
     Route: 065
  2. IRON SULFATE [Suspect]
     Indication: IRON DEFICIENCY ANAEMIA
     Dosage: 2 DF, QD
     Route: 065
  3. PANTOPRAZOLE SANDOZ [Suspect]
     Dosage: 20 MG, QD
     Route: 065
  4. PARACETAMOL, TRAMADOL HYDROCHLORIDE [Suspect]
     Dosage: 1 DF, PRN
     Route: 065
  5. PARACETAMOL, TRAMADOL HYDROCHLORIDE [Suspect]
     Dosage: 4 DF, QD
     Route: 065

REACTIONS (8)
  - Coeliac disease [Unknown]
  - Polyp [Unknown]
  - Intestinal villi atrophy [Unknown]
  - Gastritis [Unknown]
  - Duodenitis [Unknown]
  - Vitamin D deficiency [Unknown]
  - Pain [Not Recovered/Not Resolved]
  - Condition aggravated [Not Recovered/Not Resolved]
